FAERS Safety Report 6555386-9 (Version None)
Quarter: 2010Q1

REPORT INFORMATION
  Report Type: 
  Country: None (occurrence: None)
  Receive Date: 20100128
  Receipt Date: 20090901
  Transmission Date: 20100710
  Serious: No
  Sender: FDA-Public Use
  Company Number: A0805825A

PATIENT
  Age: 55 Year
  Sex: Female
  Weight: 44.1 kg

DRUGS (1)
  1. WELLBUTRIN [Suspect]
     Indication: DRUG USE FOR UNKNOWN INDICATION
     Route: 065

REACTIONS (5)
  - ADVERSE DRUG REACTION [None]
  - AMNESIA [None]
  - CHEST DISCOMFORT [None]
  - DRY MOUTH [None]
  - SPEECH DISORDER [None]
